FAERS Safety Report 9661100 (Version 1)
Quarter: 2013Q4

REPORT INFORMATION
  Report Type: Report from Study
  Country: JP (occurrence: JP)
  Receive Date: 20131031
  Receipt Date: 20131031
  Transmission Date: 20140711
  Serious: No
  Sender: FDA-Public Use
  Company Number: JP-PFIZER INC-2013309976

PATIENT
  Age: 76 Year
  Sex: Female
  Weight: 58.1 kg

DRUGS (19)
  1. FOSPHENYTOIN SODIUM [Suspect]
     Indication: PROPHYLAXIS
     Dosage: 15 MG/KG AT 12.5 MG/MIN IN 0.9% PHYSIOLOGICAL SALINE WITH DILUTION RATIO(1:10)
     Dates: start: 20130122, end: 20130122
  2. FOSPHENYTOIN SODIUM [Suspect]
     Dosage: 15 MG/KG AT 12.5 MG/MIN IN 0.9% PHYSIOLOGICAL SALINE WITH DILUTION RATIO(1:10)
     Dates: start: 20130123, end: 20130123
  3. FOSPHENYTOIN SODIUM [Suspect]
     Dosage: 15 MG/KG AT 12.5 MG/MIN IN 0.9% PHYSIOLOGICAL SALINE WITH DILUTION RATIO(1:10)
     Dates: start: 20130124, end: 20130124
  4. FOSPHENYTOIN SODIUM [Suspect]
     Dosage: 15 MG/KG AT 12.5 MG/MIN IN 0.9% PHYSIOLOGICAL SALINE WITH DILUTION RATIO(1:10)
     Dates: start: 20130125, end: 20130125
  5. GLYCERIN W/FRUCTOSE [Concomitant]
     Dosage: 400 ML, UNK
     Dates: start: 20130122, end: 20130125
  6. VEEN-F [Concomitant]
     Indication: FLUID REPLACEMENT
     Dosage: 1500 ML, UNK
     Dates: start: 20130122, end: 20130123
  7. CEFAZOLIN SODIUM [Concomitant]
     Indication: INFECTION PROPHYLAXIS
     Dosage: 2 G, UNK
     Dates: start: 20130122, end: 20130126
  8. TAKEPRON [Concomitant]
     Indication: PROPHYLAXIS
     Dosage: 60 MG, UNK
     Dates: start: 20130123, end: 20130125
  9. PROPOFOL [Concomitant]
     Dosage: UNK
     Dates: start: 20130122, end: 20130123
  10. MUSCURATE [Concomitant]
     Dosage: UNK
     Dates: start: 20130122, end: 20130123
  11. ADONA [Concomitant]
     Indication: PROPHYLAXIS
     Dosage: 150 MG, UNK
     Dates: start: 20130122, end: 20130123
  12. TRANSAMIN [Concomitant]
     Indication: PROPHYLAXIS
     Dosage: 30 ML, UNK
     Dates: start: 20130122, end: 20130123
  13. NICARPINE [Concomitant]
     Indication: PROPHYLAXIS
     Dosage: UNK
     Dates: start: 20130122
  14. CALBLOCK [Concomitant]
     Indication: PROPHYLAXIS
     Dosage: 16 MG, UNK
     Route: 048
     Dates: start: 20130126
  15. CERCINE [Concomitant]
     Dosage: 5 MG, UNK
     Dates: start: 20130123
  16. DIOVAN (VALSARTAN) [Concomitant]
     Indication: PROPHYLAXIS
     Dosage: 80 MG, UNK
     Route: 048
     Dates: start: 20130125
  17. BFLUID [Concomitant]
     Indication: FLUID REPLACEMENT
     Dosage: 1500 ML, UNK
     Dates: start: 20130124
  18. ALEVIATIN [Concomitant]
     Indication: EPILEPSY
     Dosage: 300 MG POWDER
     Route: 048
     Dates: start: 20130124, end: 20130125
  19. DEPAKENE [Concomitant]
     Indication: EPILEPSY
     Dosage: 400 MG, UNK
     Route: 048
     Dates: start: 20130126

REACTIONS (1)
  - Muscle spasms [Recovered/Resolved]
